FAERS Safety Report 15894296 (Version 2)
Quarter: 2019Q3

REPORT INFORMATION
  Report Type: Spontaneous
  Country: MY (occurrence: MY)
  Receive Date: 20190131
  Receipt Date: 20190729
  Transmission Date: 20191004
  Serious: Yes (Hospitalization, Other)
  Sender: FDA-Public Use
  Company Number: MY-SUN PHARMACEUTICAL INDUSTRIES LTD-2019R1-197707

PATIENT
  Age: 20 Year
  Sex: Male

DRUGS (3)
  1. VALPROIC ACID. [Suspect]
     Active Substance: VALPROIC ACID
     Indication: PARTIAL SEIZURES
     Dosage: 600/400 MG BD
     Route: 065
  2. PHENYTOIN. [Suspect]
     Active Substance: PHENYTOIN
     Indication: PARTIAL SEIZURES
     Dosage: 300 MILLIGRAM, QD
     Route: 048
  3. VALPROIC ACID. [Suspect]
     Active Substance: VALPROIC ACID
     Dosage: 600/800 MG TWICE DAILY FOR THE PAST THREE WEEKS
     Route: 065

REACTIONS (7)
  - Delirium [Unknown]
  - Drug level above therapeutic [Unknown]
  - Confusional state [Unknown]
  - Aggression [Unknown]
  - Drug level below therapeutic [Not Recovered/Not Resolved]
  - Blindness [Recovered/Resolved]
  - Toxicity to various agents [Unknown]
